FAERS Safety Report 22136815 (Version 1)
Quarter: 2023Q1

REPORT INFORMATION
  Report Type: Spontaneous
  Country: US (occurrence: US)
  Receive Date: 20230324
  Receipt Date: 20230324
  Transmission Date: 20230418
  Serious: Yes (Other)
  Sender: FDA-Public Use
  Company Number: US-JNJFOC-20230335110

PATIENT

DRUGS (1)
  1. EVICEL [Suspect]
     Active Substance: FIBRINOGEN HUMAN\THROMBIN HUMAN
     Indication: Osteochondrosis
     Route: 065

REACTIONS (3)
  - Musculoskeletal stiffness [Unknown]
  - Product use in unapproved indication [Unknown]
  - Off label use [Unknown]
